FAERS Safety Report 4706474-0 (Version None)
Quarter: 2005Q3

REPORT INFORMATION
  Report Type: 
  Country: None (occurrence: None)
  Receive Date: 20050705
  Receipt Date: 20050517
  Transmission Date: 20060218
  Serious: Yes (Disabling, Other)
  Sender: FDA-Public Use
  Company Number: ZA-GLAXOSMITHKLINE-B0381636A

PATIENT
  Age: 21 Year
  Sex: Male

DRUGS (3)
  1. ZYBAN [Suspect]
     Dosage: 150MG TWICE PER DAY
     Route: 048
     Dates: start: 20050415, end: 20050501
  2. MARIJUANA [Concomitant]
     Indication: DRUG USE FOR UNKNOWN INDICATION
  3. CANNABIS [Concomitant]

REACTIONS (21)
  - ARTHRALGIA [None]
  - BLISTER [None]
  - CHEST PAIN [None]
  - CONSTIPATION [None]
  - DERMATITIS ALLERGIC [None]
  - DISORIENTATION [None]
  - DRUG ADMINISTRATION ERROR [None]
  - EYE SWELLING [None]
  - FEAR [None]
  - JOINT SWELLING [None]
  - LOSS OF CONSCIOUSNESS [None]
  - MOOD ALTERED [None]
  - ORAL PAIN [None]
  - PALPITATIONS [None]
  - PANIC REACTION [None]
  - PHARMACEUTICAL PRODUCT COMPLAINT [None]
  - PHARYNGITIS STREPTOCOCCAL [None]
  - RASH [None]
  - SKIN EXFOLIATION [None]
  - STEVENS-JOHNSON SYNDROME [None]
  - URTICARIA [None]
